FAERS Safety Report 17395092 (Version 4)
Quarter: 2020Q2

REPORT INFORMATION
  Report Type: Spontaneous
  Country: US (occurrence: US)
  Receive Date: 20200210
  Receipt Date: 20200603
  Transmission Date: 20200713
  Serious: Yes (Other)
  Sender: FDA-Public Use
  Company Number: US-CELGENEUS-USA-20200200850

PATIENT
  Sex: Female
  Weight: 56.75 kg

DRUGS (3)
  1. REVLIMID [Suspect]
     Active Substance: LENALIDOMIDE
     Dosage: 5 MILLIGRAM
     Route: 048
     Dates: start: 2020
  2. REVLIMID [Suspect]
     Active Substance: LENALIDOMIDE
     Indication: PLASMA CELL MYELOMA
     Dosage: 10 MILLIGRAM
     Route: 048
     Dates: start: 20191117
  3. REVLIMID [Suspect]
     Active Substance: LENALIDOMIDE
     Dosage: 5 MILLIGRAM
     Route: 048
     Dates: start: 202003

REACTIONS (6)
  - Renal impairment [Not Recovered/Not Resolved]
  - Full blood count decreased [Unknown]
  - Rash erythematous [Recovered/Resolved]
  - White blood cell count decreased [Unknown]
  - Blood creatinine increased [Not Recovered/Not Resolved]
  - Skin exfoliation [Not Recovered/Not Resolved]
